FAERS Safety Report 9412690 (Version 2)
Quarter: 2013Q4

REPORT INFORMATION
  Report Type: Spontaneous
  Country: DE (occurrence: DE)
  Receive Date: 20130722
  Receipt Date: 20131030
  Transmission Date: 20140711
  Serious: Yes (Hospitalization)
  Sender: FDA-Public Use
  Company Number: DE-JNJFOC-20130709621

PATIENT
  Age: 65 Year
  Sex: Female

DRUGS (5)
  1. XARELTO [Suspect]
     Indication: SICK SINUS SYNDROME
     Route: 048
  2. XARELTO [Suspect]
     Indication: SICK SINUS SYNDROME
     Route: 048
     Dates: start: 20130320, end: 20130401
  3. METOPROLOL SUCCINATE [Concomitant]
     Indication: SICK SINUS SYNDROME
     Route: 065
     Dates: start: 20130314
  4. TORASEMID [Concomitant]
     Indication: SICK SINUS SYNDROME
     Route: 065
     Dates: start: 20130314
  5. VOCADO [Concomitant]
     Indication: HYPERTENSION
     Route: 065
     Dates: start: 20130314

REACTIONS (2)
  - Implant site inflammation [Recovered/Resolved]
  - Implant site haemorrhage [Recovered/Resolved]
